FAERS Safety Report 9443895 (Version 3)
Quarter: 2013Q4

REPORT INFORMATION
  Report Type: Spontaneous
  Country: JP (occurrence: JP)
  Receive Date: 20130807
  Receipt Date: 20131014
  Transmission Date: 20140711
  Serious: Yes (Hospitalization)
  Sender: FDA-Public Use
  Company Number: JP-ROCHE-1257325

PATIENT
  Age: 90 Year
  Sex: Female
  Weight: 58 kg

DRUGS (5)
  1. MIRCERA [Suspect]
     Indication: NEPHROGENIC ANAEMIA
     Route: 058
     Dates: start: 201111, end: 20130709
  2. MIRCERA [Suspect]
     Route: 058
     Dates: start: 20121221
  3. MIRCERA [Suspect]
     Route: 058
     Dates: start: 20121221
  4. AMLODIPINE [Concomitant]
     Indication: HYPERTENSION
     Route: 048
  5. RHYTHMY [Concomitant]
     Indication: INSOMNIA
     Route: 048

REACTIONS (1)
  - Aplasia pure red cell [Not Recovered/Not Resolved]
